FAERS Safety Report 9085419 (Version 1)
Quarter: 2013Q1

REPORT INFORMATION
  Report Type: Report from Study
  Country: US (occurrence: US)
  Receive Date: 20130131
  Receipt Date: 20130131
  Transmission Date: 20140127
  Serious: No
  Sender: FDA-Public Use
  Company Number: US-ABBOTT-12P-163-0998661-00

PATIENT
  Age: 53 Year
  Sex: Female

DRUGS (10)
  1. HUMIRA [Suspect]
     Indication: PSORIASIS
     Dates: start: 20121004, end: 20121004
  2. HUMIRA [Suspect]
     Dates: start: 20121017
  3. SAVELLA [Concomitant]
     Indication: BACK PAIN
     Dosage: 1 TABLET DAILY
  4. ARMOUR THYROID [Concomitant]
     Indication: THYROID DISORDER
     Dosage: 60MG DAILY
  5. MULTIVITAMIN [Concomitant]
     Indication: PRODUCT USED FOR UNKNOWN INDICATION
  6. COMPOUND HORMONE OF DHEA AND TESTOSTERONE [Concomitant]
     Indication: THYROID HORMONE REPLACEMENT THERAPY
     Dosage: DAILY
  7. COMPOUND HORMONE OF DHEA AND TESTOSTERONE [Concomitant]
     Indication: THYROIDECTOMY
  8. BYETTA [Concomitant]
     Indication: THYROID HORMONE REPLACEMENT THERAPY
     Route: 058
  9. BYETTA [Concomitant]
     Indication: THYROIDECTOMY
  10. KLONOPIN [Concomitant]
     Indication: INSOMNIA
     Dosage: 1 TABLET AT NIGHT

REACTIONS (2)
  - Injection site pain [Recovered/Resolved]
  - Injection site pain [Recovered/Resolved]
